FAERS Safety Report 20571584 (Version 3)
Quarter: 2022Q3

REPORT INFORMATION
  Report Type: Report from Study
  Country: CN (occurrence: None)
  Receive Date: 20220309
  Receipt Date: 20220728
  Transmission Date: 20221026
  Serious: Yes (Life-Threatening, Hospitalization)
  Sender: FDA-Public Use
  Company Number: 2021A683909

PATIENT
  Age: 24187 Day
  Sex: Male

DRUGS (46)
  1. DURVALUMAB [Suspect]
     Active Substance: DURVALUMAB
     Indication: Small cell lung cancer
     Route: 042
     Dates: start: 20210525
  2. DURVALUMAB [Suspect]
     Active Substance: DURVALUMAB
     Indication: Small cell lung cancer
     Route: 042
     Dates: start: 20210616
  3. DURVALUMAB [Suspect]
     Active Substance: DURVALUMAB
     Indication: Small cell lung cancer
     Route: 042
     Dates: start: 20210707
  4. DURVALUMAB [Suspect]
     Active Substance: DURVALUMAB
     Indication: Small cell lung cancer
     Route: 042
     Dates: start: 20210728
  5. CARBOPLATIN [Suspect]
     Active Substance: CARBOPLATIN
     Indication: Small cell lung cancer
     Dosage: 5 AUC EVERY THREE WEEKS
     Route: 042
     Dates: start: 20210525
  6. CARBOPLATIN [Suspect]
     Active Substance: CARBOPLATIN
     Indication: Small cell lung cancer
     Dosage: 5 AUC EVERY THREE WEEKS
     Route: 042
     Dates: start: 20210616
  7. CARBOPLATIN [Suspect]
     Active Substance: CARBOPLATIN
     Indication: Small cell lung cancer
     Dosage: 5 AUC EVERY THREE WEEKS
     Route: 042
     Dates: start: 20210707
  8. CARBOPLATIN [Suspect]
     Active Substance: CARBOPLATIN
     Indication: Small cell lung cancer
     Dosage: 5 AUC EVERY THREE WEEKS
     Route: 042
     Dates: start: 20210728
  9. ETOPOSIDE [Suspect]
     Active Substance: ETOPOSIDE
     Indication: Small cell lung cancer
     Route: 042
     Dates: start: 20210525
  10. ETOPOSIDE [Suspect]
     Active Substance: ETOPOSIDE
     Indication: Small cell lung cancer
     Route: 042
     Dates: start: 20210526
  11. ETOPOSIDE [Suspect]
     Active Substance: ETOPOSIDE
     Indication: Small cell lung cancer
     Route: 042
     Dates: start: 20210527
  12. ETOPOSIDE [Suspect]
     Active Substance: ETOPOSIDE
     Indication: Small cell lung cancer
     Route: 042
     Dates: start: 20210616
  13. ETOPOSIDE [Suspect]
     Active Substance: ETOPOSIDE
     Indication: Small cell lung cancer
     Route: 042
     Dates: start: 20210617
  14. ETOPOSIDE [Suspect]
     Active Substance: ETOPOSIDE
     Indication: Small cell lung cancer
     Route: 042
     Dates: start: 20210618
  15. ETOPOSIDE [Suspect]
     Active Substance: ETOPOSIDE
     Indication: Small cell lung cancer
     Route: 042
     Dates: start: 20210707
  16. ETOPOSIDE [Suspect]
     Active Substance: ETOPOSIDE
     Indication: Small cell lung cancer
     Route: 042
     Dates: start: 20210708
  17. ETOPOSIDE [Suspect]
     Active Substance: ETOPOSIDE
     Indication: Small cell lung cancer
     Route: 042
     Dates: start: 20210709
  18. ETOPOSIDE [Suspect]
     Active Substance: ETOPOSIDE
     Indication: Small cell lung cancer
     Route: 042
     Dates: start: 20210728
  19. ETOPOSIDE [Suspect]
     Active Substance: ETOPOSIDE
     Indication: Small cell lung cancer
     Route: 042
     Dates: start: 20210729
  20. ETOPOSIDE [Suspect]
     Active Substance: ETOPOSIDE
     Indication: Small cell lung cancer
     Route: 042
     Dates: start: 20210730
  21. LEVAMLODIPINE BESYLATE [Concomitant]
     Active Substance: LEVAMLODIPINE BESYLATE
     Dates: start: 2001
  22. NOVOLIN R [Concomitant]
     Active Substance: INSULIN HUMAN
     Dates: start: 2011
  23. RECOMBINANT HUMAN GRANULOCYTE COLONY STIMULATING FACTOR TROPISETRON... [Concomitant]
     Indication: Prophylaxis
  24. GLUCOSE SODIUM CHLORIDE [Concomitant]
     Indication: Lung neoplasm malignant
     Dates: start: 20210813, end: 20210813
  25. COMPOUND AMINO ACID 18AA-II [Concomitant]
     Indication: Lung neoplasm malignant
     Dates: start: 20210813, end: 20210813
  26. MEDIUM/LONG CHAIN FAT EMULSION [Concomitant]
     Indication: Lung neoplasm malignant
     Dates: start: 20210813, end: 20210813
  27. WATER SOLUBLE VITAMINS [Concomitant]
     Indication: Lung neoplasm malignant
     Dates: start: 20210813, end: 20210813
  28. THROMBOPOIETIN [Concomitant]
     Active Substance: THROMBOPOIETIN
     Indication: Laboratory test abnormal
     Dates: start: 20210813, end: 20210821
  29. HUMAN GRANULOCYTE STIMULATING FACTOR [Concomitant]
     Dates: start: 20210813, end: 20210815
  30. IPRATROPIUM BROMIDE [Concomitant]
     Active Substance: IPRATROPIUM BROMIDE
     Indication: Chest discomfort
     Dates: start: 20210813, end: 20210813
  31. BUDESONIDE [Concomitant]
     Active Substance: BUDESONIDE
     Indication: Chest discomfort
     Dates: start: 20210813, end: 20210823
  32. TERBUTALINE SULFATE [Concomitant]
     Active Substance: TERBUTALINE SULFATE
     Indication: Chest discomfort
     Dates: start: 20210813, end: 20210823
  33. .ALPHA.-ASARONE [Concomitant]
     Active Substance: .ALPHA.-ASARONE
     Indication: Chest discomfort
     Dates: start: 20210813, end: 20210823
  34. CALCIUM GLUCONATE [Concomitant]
     Active Substance: CALCIUM GLUCONATE
     Indication: Small cell lung cancer
     Dates: start: 20210813, end: 20210813
  35. SODIUM POTASSIUM CALCIUM MAGNESIUM GLUCOSE [Concomitant]
     Indication: Small cell lung cancer
     Dates: start: 20210813, end: 20210813
  36. INSULIN NOS [Concomitant]
     Active Substance: INSULIN NOS
     Dates: start: 20210813, end: 20210817
  37. DEXTROSE [Concomitant]
     Active Substance: DEXTROSE
     Dates: start: 20210813, end: 20210823
  38. REMIFENTANIL [Concomitant]
     Active Substance: REMIFENTANIL
     Indication: Up and down phenomenon
     Dates: start: 20210813, end: 20210822
  39. METARAMINOL BITARTRATE [Concomitant]
     Active Substance: METARAMINOL BITARTRATE
     Indication: Prophylaxis
     Dates: start: 20210813, end: 20210813
  40. PROPOFOL [Concomitant]
     Active Substance: PROPOFOL
     Indication: Up and down phenomenon
     Dates: start: 20210813, end: 20210820
  41. DEXMEDETOMIDI NE HYDROCHLORIDE [Concomitant]
     Indication: Up and down phenomenon
     Dates: start: 20210813, end: 20210822
  42. CEFEPIME HYDROCHLORIDE [Concomitant]
     Active Substance: CEFEPIME HYDROCHLORIDE
     Indication: Prophylaxis
     Dates: start: 20210813, end: 20210816
  43. TORSEMIDE [Concomitant]
     Active Substance: TORSEMIDE
     Indication: Hypoacusis
     Dates: start: 20210813, end: 20210822
  44. DIETARY SUPPLEMENT [Concomitant]
     Active Substance: DIETARY SUPPLEMENT
     Indication: Imprisonment
     Dates: start: 20210813, end: 20210823
  45. DOXOFYLLINE [Concomitant]
     Active Substance: DOXOFYLLINE
     Indication: Chest discomfort
     Dates: start: 20210813, end: 20210813
  46. DESLANOSIDE [Concomitant]
     Active Substance: DESLANOSIDE
     Indication: Hypoacusis
     Dates: start: 20210813, end: 20210813

REACTIONS (4)
  - White blood cell count decreased [Not Recovered/Not Resolved]
  - Neutrophil count decreased [Not Recovered/Not Resolved]
  - Anaemia [Not Recovered/Not Resolved]
  - Pneumonia [Not Recovered/Not Resolved]

NARRATIVE: CASE EVENT DATE: 20210621
